FAERS Safety Report 9977549 (Version 2)
Quarter: 2014Q1

REPORT INFORMATION
  Report Type: Report from Study
  Country: US (occurrence: US)
  Receive Date: 20140306
  Receipt Date: 20140306
  Transmission Date: 20141002
  Serious: No
  Sender: FDA-Public Use
  Company Number: US-ABBVIE-13P-163-1149680-00

PATIENT
  Age: 62 Year
  Sex: Male

DRUGS (4)
  1. HUMIRA [Suspect]
     Indication: CROHN^S DISEASE
     Dates: start: 20130807, end: 20131030
  2. LIALDA [Concomitant]
     Indication: PRODUCT USED FOR UNKNOWN INDICATION
  3. ADVAIR [Concomitant]
     Indication: PRODUCT USED FOR UNKNOWN INDICATION
  4. DILTIAZEM [Concomitant]
     Indication: PRODUCT USED FOR UNKNOWN INDICATION

REACTIONS (2)
  - Rectal abscess [Recovering/Resolving]
  - Urinary tract infection [Recovered/Resolved]
